FAERS Safety Report 26157407 (Version 1)
Quarter: 2025Q4

REPORT INFORMATION
  Report Type: Spontaneous
  Country: US (occurrence: None)
  Receive Date: 20251212
  Receipt Date: 20251212
  Transmission Date: 20260117
  Serious: No
  Sender: FDA-CTU
  Company Number: None

PATIENT
  Age: 37 Year
  Sex: Male
  Weight: 74.25 kg

DRUGS (7)
  1. LEVOFLOXACIN [Suspect]
     Active Substance: LEVOFLOXACIN
     Indication: Sinusitis
     Dosage: FREQUENCY : DAILY;
     Route: 048
     Dates: start: 20251208, end: 20251212
  2. ESCITALOPRAM [Concomitant]
     Active Substance: ESCITALOPRAM OXALATE
  3. lamotrigine 10 mg [Concomitant]
  4. memantine 10 mg [Concomitant]
  5. testosterone cypionate 1 ml [Concomitant]
  6. TADALAFIL [Concomitant]
     Active Substance: TADALAFIL
  7. NUTRAFOL [Concomitant]

REACTIONS (2)
  - Hypoaesthesia [None]
  - Paraesthesia [None]

NARRATIVE: CASE EVENT DATE: 20251209
